FAERS Safety Report 20108210 (Version 1)
Quarter: 2021Q4

REPORT INFORMATION
  Report Type: Spontaneous
  Country: US (occurrence: US)
  Receive Date: 20211124
  Receipt Date: 20211124
  Transmission Date: 20220303
  Serious: No
  Sender: FDA-Public Use
  Company Number: US-KERYX BIOPHARMACEUTICALS INC.-2021US008256

PATIENT
  Sex: Female

DRUGS (1)
  1. AURYXIA [Suspect]
     Active Substance: TETRAFERRIC TRICITRATE DECAHYDRATE
     Indication: Product used for unknown indication
     Dosage: 2 GRAM (TABLET), TID WITH MEALS
     Route: 048
     Dates: start: 202104

REACTIONS (3)
  - Faeces discoloured [Unknown]
  - Frequent bowel movements [Unknown]
  - Product dose omission issue [Unknown]
